FAERS Safety Report 22132314 (Version 1)
Quarter: 2023Q1

REPORT INFORMATION
  Report Type: Spontaneous
  Country: None (occurrence: US)
  Receive Date: 20230323
  Receipt Date: 20230323
  Transmission Date: 20230417
  Serious: No
  Sender: FDA-Public Use
  Company Number: US-LNK INTERNATIONAL, INC.-2139445

PATIENT
  Sex: Female

DRUGS (1)
  1. ANTI-DIARRHEAL (LOPERAMIDE HYDROCHLORIDE) [Suspect]
     Active Substance: LOPERAMIDE HYDROCHLORIDE
     Indication: Diarrhoea

REACTIONS (1)
  - Drug ineffective [None]
